FAERS Safety Report 10133651 (Version 1)
Quarter: 2014Q2

REPORT INFORMATION
  Report Type: Spontaneous
  Country: IE (occurrence: IE)
  Receive Date: 20140428
  Receipt Date: 20140428
  Transmission Date: 20141212
  Serious: Yes (Death)
  Sender: FDA-Public Use
  Company Number: IE-ABBVIE-14P-229-1230838-00

PATIENT
  Sex: 0

DRUGS (2)
  1. KLACID [Suspect]
     Indication: PRODUCT USED FOR UNKNOWN INDICATION
     Dates: start: 2011
  2. ALL OTHER THERAPEUTIC PRODUCTS [Concomitant]
     Indication: PRODUCT USED FOR UNKNOWN INDICATION

REACTIONS (1)
  - Atrial fibrillation [Fatal]
